FAERS Safety Report 8228883-8 (Version None)
Quarter: 2012Q1

REPORT INFORMATION
  Report Type: 
  Country: None (occurrence: None)
  Receive Date: 20120322
  Receipt Date: 20120321
  Transmission Date: 20120608
  Serious: Yes (Other)
  Sender: FDA-Public Use
  Company Number: PR-BAYER-2012-027287

PATIENT
  Age: 61 Year
  Sex: Male

DRUGS (1)
  1. SORAFENIB (RAF KINASE INHIBITOR) [Suspect]
     Indication: HEPATIC NEOPLASM MALIGNANT
     Dosage: UNK
     Route: 048

REACTIONS (5)
  - ABDOMINAL PAIN [None]
  - TUMOUR NECROSIS [None]
  - ABDOMINAL ABSCESS [None]
  - WEIGHT DECREASED [None]
  - MALAISE [None]
